FAERS Safety Report 9112067 (Version 1)
Quarter: 2013Q1

REPORT INFORMATION
  Report Type: Spontaneous
  Country: US (occurrence: US)
  Receive Date: 20130219
  Receipt Date: 20130219
  Transmission Date: 20140127
  Serious: Yes (Other)
  Sender: FDA-Public Use
  Company Number: US-BRISTOL-MYERS SQUIBB COMPANY-17053018

PATIENT
  Age: 73 Year
  Sex: Female
  Weight: 67.57 kg

DRUGS (1)
  1. ABATACEPT SUBQ INJECTION 125MG/ML [Suspect]
     Indication: RHEUMATOID ARTHRITIS
     Dosage: ORENCIA
     Route: 058

REACTIONS (2)
  - Pneumonia [Not Recovered/Not Resolved]
  - Viral infection [Not Recovered/Not Resolved]
